FAERS Safety Report 7802266-4 (Version None)
Quarter: 2011Q4

REPORT INFORMATION
  Report Type: 
  Country: None (occurrence: None)
  Receive Date: 20111007
  Receipt Date: 20110930
  Transmission Date: 20120403
  Serious: Yes (Other)
  Sender: FDA-Public Use
  Company Number: US-JNJFOC-20111001424

PATIENT
  Age: 65 Year
  Sex: Female

DRUGS (4)
  1. DOXIL [Suspect]
     Route: 042
  2. TOPOTECAN [Suspect]
     Route: 065
  3. TOPOTECAN [Suspect]
     Indication: OVARIAN CANCER METASTATIC
     Route: 065
  4. DOXIL [Suspect]
     Indication: OVARIAN CANCER METASTATIC
     Route: 042

REACTIONS (1)
  - CARBOHYDRATE ANTIGEN 125 INCREASED [None]
